FAERS Safety Report 5788640-9 (Version None)
Quarter: 2008Q2

REPORT INFORMATION
  Report Type: 
  Country: None (occurrence: None)
  Receive Date: 20080624
  Receipt Date: 20080617
  Transmission Date: 20081010
  Serious: Yes (Death)
  Sender: FDA-Public Use
  Company Number: CERZ-1000234

PATIENT
  Age: 19 Year
  Sex: Male
  Weight: 42 kg

DRUGS (3)
  1. CEREZYME [Suspect]
     Indication: GAUCHER'S DISEASE
     Dosage: 80 U/KG, Q2W, INTRAVENOUS
     Route: 042
     Dates: start: 19990401, end: 20080514
  2. VALPROIC ACID [Concomitant]
  3. LEVETIRACETAM [Concomitant]

REACTIONS (1)
  - CARDIAC ARREST [None]
